FAERS Safety Report 21519332 (Version 11)
Quarter: 2023Q1

REPORT INFORMATION
  Report Type: Other
  Country: JP (occurrence: JP)
  Receive Date: 20221028
  Receipt Date: 20230310
  Transmission Date: 20230418
  Serious: Yes (Hospitalization, Other)
  Sender: FDA-Public Use
  Company Number: JP-CHUGAI-2022042298

PATIENT
  Age: 37 Year
  Sex: Female
  Weight: 57.8 kg

DRUGS (2)
  1. ATEZOLIZUMAB [Suspect]
     Active Substance: ATEZOLIZUMAB
     Indication: Triple negative breast cancer
     Route: 041
     Dates: start: 20220824
  2. PACLITAXEL [Suspect]
     Active Substance: PACLITAXEL
     Indication: Triple negative breast cancer
     Dosage: 100 MILLIGRAM/SQ. METER
     Route: 041
     Dates: start: 20220824, end: 20220921

REACTIONS (6)
  - Aspartate aminotransferase increased [Recovering/Resolving]
  - Drug-induced liver injury [Unknown]
  - Neutropenia [Recovered/Resolved]
  - Alopecia [Unknown]
  - Alanine aminotransferase increased [Not Recovered/Not Resolved]
  - Fatigue [Recovering/Resolving]

NARRATIVE: CASE EVENT DATE: 20220907
